FAERS Safety Report 16904630 (Version 1)
Quarter: 2019Q4

REPORT INFORMATION
  Report Type: Spontaneous
  Country: US (occurrence: US)
  Receive Date: 20191009
  Receipt Date: 20191009
  Transmission Date: 20200122
  Serious: Yes (Other)
  Sender: FDA-Public Use
  Company Number: None

PATIENT
  Age: 25 Month
  Sex: Male
  Weight: 135.4 kg

DRUGS (1)
  1. LINACLOTIDE [Suspect]
     Active Substance: LINACLOTIDE
     Route: 048

REACTIONS (2)
  - Electrocardiogram QT prolonged [None]
  - Hypokalaemia [None]

NARRATIVE: CASE EVENT DATE: 20191009
